FAERS Safety Report 17659472 (Version 2)
Quarter: 2020Q2

REPORT INFORMATION
  Report Type: Spontaneous
  Country: US (occurrence: US)
  Receive Date: 20200413
  Receipt Date: 20200430
  Transmission Date: 20200713
  Serious: No
  Sender: FDA-Public Use
  Company Number: US-ASTRAZENECA-2020SE42444

PATIENT
  Weight: 81.6 kg

DRUGS (2)
  1. BYDUREON [Suspect]
     Active Substance: EXENATIDE
     Indication: TYPE 2 DIABETES MELLITUS
     Dosage: ONCE A WEEK
     Route: 065
     Dates: start: 201912
  2. METHOTREXATE. [Concomitant]
     Active Substance: METHOTREXATE
     Route: 065

REACTIONS (12)
  - Weight decreased [Unknown]
  - Product dose omission [Unknown]
  - Injection site pruritus [Unknown]
  - Injection site erythema [Unknown]
  - Injection site pain [Unknown]
  - Diarrhoea [Unknown]
  - Contusion [Unknown]
  - Injection site haemorrhage [Unknown]
  - Injection site mass [Unknown]
  - Headache [Unknown]
  - Nausea [Unknown]
  - Device leakage [Unknown]
